FAERS Safety Report 9016357 (Version 1)
Quarter: 2013Q1

REPORT INFORMATION
  Report Type: Spontaneous
  Country: CA (occurrence: CA)
  Receive Date: 20130116
  Receipt Date: 20130116
  Transmission Date: 20140127
  Serious: Yes (Other)
  Sender: FDA-Public Use
  Company Number: CA-BRISTOL-MYERS SQUIBB COMPANY-16769549

PATIENT
  Age: 30 Year
  Sex: Female

DRUGS (1)
  1. ERBITUX [Suspect]

REACTIONS (3)
  - Accidental exposure to product [Recovered/Resolved]
  - Chemical eye injury [Recovered/Resolved]
  - Corneal exfoliation [Recovered/Resolved]
